FAERS Safety Report 6164687-8 (Version None)
Quarter: 2009Q2

REPORT INFORMATION
  Report Type: 
  Country: None (occurrence: None)
  Receive Date: 20090421
  Receipt Date: 20090407
  Transmission Date: 20091009
  Serious: Yes (Death, Hospitalization)
  Sender: FDA-Public Use
  Company Number: 2009001066

PATIENT
  Age: 67 Year
  Sex: Male

DRUGS (10)
  1. ERLOTINIB (ERLOTINIB) (TABLET) (ERLOTINIB) [Suspect]
     Indication: PANCREATIC CARCINOMA
     Dosage: 100 MG, QD, ORAL
     Route: 048
     Dates: start: 20080128, end: 20090221
  2. GEMCITABINE [Suspect]
     Indication: PANCREATIC CARCINOMA
     Dosage: 1910 MG, INTRAVENOUS
     Route: 042
     Dates: start: 20090128, end: 20090221
  3. INSULIN (INSULIN) [Concomitant]
  4. METOCLOPRAMIDE [Concomitant]
  5. DEXAMETHASONE TAB [Concomitant]
  6. OMEPRAZOLE [Concomitant]
  7. CODEINE SUL TAB [Concomitant]
  8. ACETYLSALICYLIC ACID (ACETYLSALICYLIC ACID) [Concomitant]
  9. ACETAMINOPHEN [Concomitant]
  10. MEGESTROL ACETATE [Concomitant]

REACTIONS (4)
  - BACTERAEMIA [None]
  - DISEASE PROGRESSION [None]
  - PANCREATIC CARCINOMA METASTATIC [None]
  - SUDDEN DEATH [None]
